FAERS Safety Report 8473934-9 (Version None)
Quarter: 2012Q2

REPORT INFORMATION
  Report Type: 
  Country: None (occurrence: None)
  Receive Date: 20120628
  Receipt Date: 20120621
  Transmission Date: 20120825
  Serious: Yes (Other)
  Sender: FDA-Public Use
  Company Number: US-MYLANLABS-2012S1003239

PATIENT
  Age: 65 Year
  Sex: Female

DRUGS (9)
  1. COUMADIN [Concomitant]
  2. CLOZAPINE [Suspect]
     Route: 048
     Dates: end: 20120308
  3. DILTIAZEM HYDROCHOLORIDE [Concomitant]
  4. SIMETHICONE [Concomitant]
  5. ACETAMINOPHEN [Concomitant]
  6. ALBUTEROL [Concomitant]
  7. MULTI-VITAMINS [Concomitant]
  8. ATIVAN [Concomitant]
  9. VALPROIC ACID [Concomitant]

REACTIONS (1)
  - GRANULOCYTOPENIA [None]
